FAERS Safety Report 5799211-2 (Version None)
Quarter: 2008Q3

REPORT INFORMATION
  Report Type: 
  Country: None (occurrence: None)
  Receive Date: 20080701
  Receipt Date: 20080616
  Transmission Date: 20090109
  Serious: Yes (Other)
  Sender: FDA-Public Use
  Company Number: 2008AL007377

PATIENT
  Age: 32 Year
  Sex: Male
  Weight: 45.3597 kg

DRUGS (3)
  1. DIGOXIN [Suspect]
     Indication: CARDIAC FAILURE CONGESTIVE
     Dosage: 0.125 MG, QD-QOD, PO
     Route: 048
     Dates: start: 19980101, end: 20080401
  2. LISINOPRIL [Concomitant]
  3. FUROSEMIDE [Concomitant]

REACTIONS (7)
  - ANXIETY [None]
  - BLOOD POTASSIUM INCREASED [None]
  - BODY TEMPERATURE INCREASED [None]
  - DRUG LEVEL INCREASED [None]
  - FATIGUE [None]
  - REFUSAL OF TREATMENT BY RELATIVE [None]
  - RENAL IMPAIRMENT [None]
